FAERS Safety Report 10621718 (Version 1)
Quarter: 2014Q4

REPORT INFORMATION
  Report Type: Report from Study
  Country: IL (occurrence: IL)
  Receive Date: 20141203
  Receipt Date: 20141203
  Transmission Date: 20150529
  Serious: Yes (Hospitalization, Other)
  Sender: FDA-Public Use
  Company Number: PHHY2014IL155240

PATIENT
  Age: 79 Year
  Sex: Male
  Weight: 67 kg

DRUGS (1)
  1. SANDOSTATIN LAR DEPOT [Suspect]
     Active Substance: OCTREOTIDE ACETATE
     Indication: CARCINOID TUMOUR
     Dosage: 30 MG, QW4
     Route: 030
     Dates: start: 20100530

REACTIONS (2)
  - Fall [Unknown]
  - Spinal fracture [Unknown]

NARRATIVE: CASE EVENT DATE: 20141121
